FAERS Safety Report 4638329-4 (Version None)
Quarter: 2005Q2

REPORT INFORMATION
  Report Type: 
  Country: None (occurrence: None)
  Receive Date: 20050415
  Receipt Date: 20050407
  Transmission Date: 20051028
  Serious: Yes (Hospitalization)
  Sender: FDA-Public Use
  Company Number: 213659

PATIENT
  Age: 62 Year
  Sex: Male
  Weight: 83 kg

DRUGS (14)
  1. TNKASE [Suspect]
     Indication: MYOCARDIAL INFARCTION
     Dosage: SINGLE, IV BOLUS
     Route: 040
     Dates: start: 20041124, end: 20041124
  2. ENOXAPARIN SODIUM [Concomitant]
  3. ABCIXIMAB (ABCIXIMAB) [Concomitant]
  4. LASIX [Concomitant]
  5. CLONAZEPAM [Concomitant]
  6. FES04 (FERROUS SULFATE) [Concomitant]
  7. PENMIX (HUMAN) (INSULIN HUMAN, NPH HUMAN INSULIN ISOPHANE SUSPENSION) [Concomitant]
  8. PANTERIC (PANCREATIN) [Concomitant]
  9. LOPRESSOR [Concomitant]
  10. ALDACTONE [Concomitant]
  11. CALCIUM CARBONATE (CALCIUM CARBONATE) [Concomitant]
  12. ACIDE FOLIQUE (FOLIC ACID) [Concomitant]
  13. HUMAN INSULIN (INSULIN HUMAN) [Concomitant]
  14. INSULIN [Concomitant]

REACTIONS (17)
  - ATELECTASIS [None]
  - CARDIOGENIC SHOCK [None]
  - CULTURE URINE POSITIVE [None]
  - CYTOLYTIC HEPATITIS [None]
  - DRUG INEFFECTIVE [None]
  - FATIGUE [None]
  - HYPERTHERMIA [None]
  - KLEBSIELLA INFECTION [None]
  - MULTI-ORGAN FAILURE [None]
  - NOSOCOMIAL INFECTION [None]
  - PLEURAL EFFUSION [None]
  - PNEUMONIA [None]
  - RENAL FAILURE ACUTE [None]
  - SPUTUM DISCOLOURED [None]
  - UPPER GASTROINTESTINAL HAEMORRHAGE [None]
  - URINARY TRACT INFECTION [None]
  - WEIGHT DECREASED [None]
